FAERS Safety Report 6126276-0 (Version None)
Quarter: 2009Q1

REPORT INFORMATION
  Report Type: 
  Country: None (occurrence: None)
  Receive Date: 20090320
  Receipt Date: 20090309
  Transmission Date: 20090719
  Serious: Yes (Death)
  Sender: FDA-Public Use
  Company Number: JP-ROCHE-616222

PATIENT
  Age: 39 Year
  Sex: Female

DRUGS (4)
  1. CELLCEPT [Suspect]
     Route: 048
  2. SIMULECT [Concomitant]
     Dosage: ROUTE: INTRAVENOUS (NOS)
     Route: 042
  3. MEDROL [Concomitant]
     Route: 048
  4. TACROLIMUS HYDRATE [Concomitant]
     Route: 048

REACTIONS (1)
  - LOWER GASTROINTESTINAL HAEMORRHAGE [None]
